FAERS Safety Report 20902100 (Version 3)
Quarter: 2022Q3

REPORT INFORMATION
  Report Type: Spontaneous
  Country: US (occurrence: US)
  Receive Date: 20220601
  Receipt Date: 20220831
  Transmission Date: 20221027
  Serious: No
  Sender: FDA-Public Use
  Company Number: US-PFIZER INC-202200771560

PATIENT
  Age: 67 Year
  Sex: Female
  Weight: 54.43 kg

DRUGS (8)
  1. PAXLOVID [Suspect]
     Active Substance: NIRMATRELVIR\RITONAVIR
     Indication: COVID-19 treatment
     Dosage: UNK, (TOOK ALL 3 TABLETS FOR THE FIRST DOSE)
     Route: 048
     Dates: start: 20220524
  2. PAXLOVID [Suspect]
     Active Substance: NIRMATRELVIR\RITONAVIR
     Indication: Chest pain
     Dosage: UNK, 2X/DAY
     Route: 048
     Dates: start: 20220524
  3. ZYRTEC [Concomitant]
     Active Substance: CETIRIZINE HYDROCHLORIDE
     Indication: Seasonal allergy
     Dosage: 10 MG, DAILY (EVERY MORNING)
  4. MELOXICAM [Concomitant]
     Active Substance: MELOXICAM
     Indication: Arthritis
     Dosage: 15 MG, DAILY (EVERY MORNING)
  5. OMEPRAZOLE [Concomitant]
     Active Substance: OMEPRAZOLE
     Indication: Gastrooesophageal reflux disease
     Dosage: 40 MG, DAILY (EVERY MORNING)
  6. CHOLECALCIFEROL [Concomitant]
     Active Substance: CHOLECALCIFEROL
     Indication: Vitamin D deficiency
     Dosage: 2000 IU, DAILY (EVERY MORNING)
  7. VITAMIN B AND C COMPLEX [Concomitant]
     Indication: Vitamin B complex deficiency
     Dosage: UNK, DAILY (EVERY MORNING)
  8. VITAMIN B AND C COMPLEX [Concomitant]
     Indication: Vitamin C deficiency

REACTIONS (12)
  - Asthenia [Not Recovered/Not Resolved]
  - Headache [Unknown]
  - Dysgeusia [Not Recovered/Not Resolved]
  - Hypoaesthesia [Not Recovered/Not Resolved]
  - Paraesthesia [Not Recovered/Not Resolved]
  - Chest pain [Not Recovered/Not Resolved]
  - Fatigue [Not Recovered/Not Resolved]
  - Pain in extremity [Not Recovered/Not Resolved]
  - Feeling abnormal [Not Recovered/Not Resolved]
  - Vertigo [Not Recovered/Not Resolved]
  - Cough [Recovering/Resolving]
  - Incorrect dose administered [Unknown]

NARRATIVE: CASE EVENT DATE: 20220524
